FAERS Safety Report 4432299-X (Version None)
Quarter: 2004Q3

REPORT INFORMATION
  Report Type: 
  Country: None (occurrence: None)
  Receive Date: 20040820
  Receipt Date: 20040805
  Transmission Date: 20050211
  Serious: Yes (Hospitalization)
  Sender: FDA-Public Use
  Company Number: 04-07-1014

PATIENT
  Age: 70 Year
  Sex: Female
  Weight: 69.8539 kg

DRUGS (17)
  1. QVAR INHALATION AEROSOL - IVAX LABORATORIES ORAL AEROSOL [Suspect]
     Indication: ASTHMA
     Dosage: 2 PUFFS BID INHALATION
     Dates: start: 20040220, end: 20040226
  2. QVAR INHALATION AEROSOL - IVAX LABORATORIES ORAL AEROSOL [Suspect]
     Indication: CHRONIC OBSTRUCTIVE AIRWAYS DISEASE
     Dosage: 2 PUFFS BID INHALATION
     Dates: start: 20040220, end: 20040226
  3. THEO-DUR [Concomitant]
  4. ALBUTEROL SULFATE [Concomitant]
  5. SYNTHROID [Concomitant]
  6. NITRO  PATCH 1MG [Concomitant]
  7. FLONASE [Concomitant]
  8. XALANTAN OPHTHALMIC [Concomitant]
  9. PREVACID [Concomitant]
  10. PRAVACHOL [Concomitant]
  11. VITAMIN D [Concomitant]
  12. VAGIFEM [Concomitant]
  13. ESTRACE [Concomitant]
  14. ASPIRIN [Concomitant]
  15. CARDIZEM 180 MG [Concomitant]
  16. HABITROL [Concomitant]
  17. OXYGEN [Concomitant]

REACTIONS (10)
  - BACK PAIN [None]
  - BRONCHITIS ACUTE [None]
  - CHEST DISCOMFORT [None]
  - CHRONIC OBSTRUCTIVE AIRWAYS DISEASE EXACERBATED [None]
  - COUGH [None]
  - DYSPNOEA [None]
  - HEADACHE [None]
  - HYPERTENSION [None]
  - MUSCLE SPASMS [None]
  - PHARYNGOLARYNGEAL PAIN [None]
